FAERS Safety Report 5591650-8 (Version None)
Quarter: 2007Q4

REPORT INFORMATION
  Report Type: 
  Country: None (occurrence: None)
  Receive Date: 20071217
  Receipt Date: 20070817
  Transmission Date: 20080405
  Serious: No
  Sender: FDA-Public Use
  Company Number: BDI-010073

PATIENT

DRUGS (1)
  1. MULTIHANCE [Suspect]
     Indication: NUCLEAR MAGNETIC RESONANCE IMAGING
     Dosage: SY
     Dates: start: 20070807, end: 20070807

REACTIONS (2)
  - NAUSEA [None]
  - VOMITING [None]
